FAERS Safety Report 6206349-4 (Version None)
Quarter: 2009Q2

REPORT INFORMATION
  Report Type: 
  Country: None (occurrence: None)
  Receive Date: 20090528
  Receipt Date: 20090515
  Transmission Date: 20091009
  Serious: Yes (Death, Other)
  Sender: FDA-Public Use
  Company Number: US-NOVOPROD-287236

PATIENT
  Sex: Female

DRUGS (2)
  1. NOVOLOG [Suspect]
     Indication: TYPE 2 DIABETES MELLITUS
     Dosage: SLIDING SCALE IU, QID
     Route: 058
     Dates: end: 20090514
  2. DECADRON [Suspect]
     Indication: MULTIPLE MYELOMA
     Dosage: PRN, TITRATION AS PRESCRIBED; HIGH DOSES

REACTIONS (2)
  - HYPERGLYCAEMIA [None]
  - MULTIPLE MYELOMA [None]
